FAERS Safety Report 22265152 (Version 1)
Quarter: 2023Q2

REPORT INFORMATION
  Report Type: Spontaneous
  Country: MX (occurrence: MX)
  Receive Date: 20230428
  Receipt Date: 20230428
  Transmission Date: 20230721
  Serious: Yes (Other)
  Sender: FDA-Public Use
  Company Number: MX-BAYER-2023A059498

PATIENT
  Age: 59 Year
  Sex: Male
  Weight: 66 kg

DRUGS (2)
  1. ULTRAVIST [Suspect]
     Active Substance: IOPROMIDE
     Indication: Abdomen scan
     Dosage: UNK, ONCE
  2. CHLOROPYRAMINE [Concomitant]
     Active Substance: CHLOROPYRAMINE
     Route: 042

REACTIONS (3)
  - Oxygen saturation decreased [None]
  - Paraesthesia [None]
  - Headache [None]

NARRATIVE: CASE EVENT DATE: 20230302
